FAERS Safety Report 9547011 (Version 1)
Quarter: 2013Q3

REPORT INFORMATION
  Report Type: Spontaneous
  Country: US (occurrence: None)
  Receive Date: 20130920
  Receipt Date: 20130920
  Transmission Date: 20140515
  Serious: Yes (Hospitalization)
  Sender: FDA-Public Use
  Company Number: SYM-2013-10701

PATIENT
  Age: 61 Year
  Sex: Male

DRUGS (1)
  1. XENAZINE [Suspect]
     Indication: CHOREA
     Dosage: 25MG 1 TABLET IN THE MORNING, 1/2 TABLET AT NOON, AND 1/2 TABLET IN THE EVENING., ORAL
     Route: 048
     Dates: start: 20130731

REACTIONS (1)
  - Lower limb fracture [None]
